FAERS Safety Report 7892154-X (Version None)
Quarter: 2011Q4

REPORT INFORMATION
  Report Type: 
  Country: None (occurrence: None)
  Receive Date: 20111103
  Receipt Date: 20111027
  Transmission Date: 20120403
  Serious: Yes (Other)
  Sender: FDA-Public Use
  Company Number: US-AMGEN-USASP2011055782

PATIENT
  Sex: Male

DRUGS (3)
  1. ENBREL [Suspect]
     Indication: PSORIATIC ARTHROPATHY
     Dosage: UNK
     Dates: start: 20110901, end: 20111001
  2. REMERON [Concomitant]
     Dosage: UNK
  3. CONCERTA [Concomitant]
     Dosage: UNK

REACTIONS (2)
  - DIARRHOEA [None]
  - MENTAL DISORDER [None]
